FAERS Safety Report 6699825-1 (Version None)
Quarter: 2010Q2

REPORT INFORMATION
  Report Type: 
  Country: None (occurrence: None)
  Receive Date: 20100428
  Receipt Date: 20100415
  Transmission Date: 20101027
  Serious: No
  Sender: FDA-Public Use
  Company Number: A0841696A

PATIENT
  Age: 70 Year
  Sex: Female

DRUGS (6)
  1. LUXIQ [Suspect]
     Indication: SCAB
     Dosage: 1APP PER DAY
     Route: 061
     Dates: start: 20090601
  2. BENICAR HCT [Concomitant]
  3. COUMADIN [Concomitant]
  4. DILTIAZEM CD [Concomitant]
  5. SIMVASTATIN [Concomitant]
  6. ACTONEL [Concomitant]

REACTIONS (1)
  - ALOPECIA [None]
